FAERS Safety Report 20432267 (Version 1)
Quarter: 2022Q1

REPORT INFORMATION
  Report Type: Spontaneous
  Country: US (occurrence: None)
  Receive Date: 20220204
  Receipt Date: 20220204
  Transmission Date: 20220423
  Serious: Yes (Hospitalization)
  Sender: FDA-Public Use
  Company Number: None

PATIENT
  Age: 49 Year
  Sex: Female
  Weight: 98.9 kg

DRUGS (4)
  1. CYTARABINE [Suspect]
     Active Substance: CYTARABINE
     Dates: end: 20220127
  2. SPRYCEL [Suspect]
     Active Substance: DASATINIB
     Dates: end: 20220131
  3. DEXAMETHASONE [Suspect]
     Active Substance: DEXAMETHASONE
     Dates: end: 20220127
  4. METHOTREXATE [Suspect]
     Active Substance: METHOTREXATE
     Dates: end: 20220124

REACTIONS (7)
  - Hyperglycaemia [None]
  - Fatigue [None]
  - Febrile neutropenia [None]
  - Dysphagia [None]
  - Haemoglobin decreased [None]
  - Pancytopenia [None]
  - Decreased appetite [None]

NARRATIVE: CASE EVENT DATE: 20220131
